FAERS Safety Report 19091553 (Version 1)
Quarter: 2021Q2

REPORT INFORMATION
  Report Type: Spontaneous
  Country: US (occurrence: US)
  Receive Date: 20210401
  Receipt Date: 20210401
  Transmission Date: 20210717
  Serious: No
  Sender: FDA-Public Use
  Company Number: None

PATIENT
  Age: 11 Year
  Sex: Female
  Weight: 90.5 kg

DRUGS (1)
  1. GENERIC FOR RITALIN LA 30MG [Suspect]
     Active Substance: METHYLPHENIDATE HYDROCHLORIDE
     Indication: ATTENTION DEFICIT HYPERACTIVITY DISORDER
     Dosage: ?          OTHER FREQUENCY:QAM;?
     Route: 048
     Dates: start: 20210325, end: 20210329

REACTIONS (3)
  - Anxiety [None]
  - Agitation [None]
  - Disturbance in attention [None]
